FAERS Safety Report 13108538 (Version 2)
Quarter: 2017Q1

REPORT INFORMATION
  Report Type: Other
  Country: US (occurrence: US)
  Receive Date: 20170112
  Receipt Date: 20170207
  Transmission Date: 20170428
  Serious: Yes (Death, Hospitalization, Other)
  Sender: FDA-Public Use
  Company Number: US-ACORDA-ACO_132346_2016

PATIENT
  Sex: Female
  Weight: 50.79 kg

DRUGS (1)
  1. AMPYRA [Suspect]
     Active Substance: DALFAMPRIDINE
     Indication: PRODUCT USED FOR UNKNOWN INDICATION
     Dosage: 10 MG, BID
     Route: 048

REACTIONS (4)
  - Pneumonia [Fatal]
  - Lung neoplasm malignant [Fatal]
  - Pseudomonal sepsis [Fatal]
  - Acute respiratory failure [Fatal]
